FAERS Safety Report 17308075 (Version 1)
Quarter: 2020Q1

REPORT INFORMATION
  Report Type: Report from Study
  Country: IT (occurrence: IT)
  Receive Date: 20200123
  Receipt Date: 20200123
  Transmission Date: 20200409
  Serious: Yes (Other)
  Sender: FDA-Public Use
  Company Number: IT-TEVA-2019-IT-1111727

PATIENT
  Age: 52 Year
  Sex: Male
  Weight: 70 kg

DRUGS (2)
  1. PACLITAXEL TEVA 6 MG/ML, CONCENTRATO PER SOLUZIONE PER INFUSIONE [Suspect]
     Active Substance: PACLITAXEL
     Dosage: 380 MILLIGRAM,1 CYCLICAL
     Dates: start: 20190730, end: 20190820
  2. CARBOPLATINO TEVA 10 MG/ML [Concomitant]
     Active Substance: CARBOPLATIN
     Dosage: 625 MILLIGRAM
     Route: 042
     Dates: start: 20190730, end: 20190820

REACTIONS (5)
  - Chest discomfort [Recovered/Resolved]
  - Hyperaemia [Recovered/Resolved]
  - Chest pain [Recovered/Resolved]
  - Photopsia [Recovered/Resolved]
  - Back pain [Recovered/Resolved]

NARRATIVE: CASE EVENT DATE: 20190820
